FAERS Safety Report 9100595 (Version 2)
Quarter: 2013Q1

REPORT INFORMATION
  Report Type: Spontaneous
  Country: JP (occurrence: JP)
  Receive Date: 20130215
  Receipt Date: 20130221
  Transmission Date: 20140127
  Serious: Yes (Other)
  Sender: FDA-Public Use
  Company Number: JP-ROCHE-1187651

PATIENT
  Sex: Female

DRUGS (9)
  1. AVASTIN [Suspect]
     Indication: COLON CANCER
     Route: 041
     Dates: start: 20100324, end: 20100820
  2. ELPLAT [Concomitant]
     Indication: COLON CANCER
     Route: 041
     Dates: start: 20100324
  3. 5-FU [Concomitant]
     Indication: COLON CANCER
     Dosage: 2500-2750 MG
     Route: 040
     Dates: start: 20100506
  4. 5-FU [Concomitant]
     Indication: COLON CANCER
     Dosage: 2500-2750MG
     Route: 041
     Dates: start: 20100506
  5. LEVOFOLINATE [Concomitant]
     Indication: COLON CANCER
     Route: 041
     Dates: start: 20100506
  6. PHENYTOIN [Concomitant]
     Indication: TEMPORAL LOBE EPILEPSY
     Route: 048
  7. PHENYTOIN [Concomitant]
     Indication: TEMPORAL LOBE EPILEPSY
     Route: 048
  8. PHENYTOIN [Concomitant]
     Indication: TEMPORAL LOBE EPILEPSY
     Route: 048
  9. SODIUM VALPROATE [Concomitant]
     Indication: TEMPORAL LOBE EPILEPSY
     Route: 048

REACTIONS (1)
  - Bone marrow failure [Recovered/Resolved]
